FAERS Safety Report 6919681-3 (Version None)
Quarter: 2010Q3

REPORT INFORMATION
  Report Type: 
  Country: None (occurrence: None)
  Receive Date: 20100811
  Receipt Date: 20100802
  Transmission Date: 20110219
  Serious: Yes (Hospitalization, Other)
  Sender: FDA-Public Use
  Company Number: US-ROCHE-703928

PATIENT
  Sex: Male
  Weight: 68 kg

DRUGS (8)
  1. CAPECITABINE [Suspect]
     Indication: GASTRIC CANCER
     Dosage: FREQUENCY: DAY 1- DAY 14 TWICE DAILY
     Route: 048
     Dates: start: 20100224, end: 20100412
  2. ELOXATIN [Suspect]
     Indication: GASTRIC CANCER
     Dosage: FREQUENCY: ON  DAY 1 OF CYCLE
     Route: 042
     Dates: start: 20100224, end: 20100412
  3. CETUXIMAB [Suspect]
     Indication: GASTRIC CANCER
     Dosage: FREQUENCY: DAY 1, 8 AND 15 EACH CYCLE
     Route: 042
     Dates: start: 20100224, end: 20100412
  4. FERROUS SULFATE TAB [Concomitant]
     Route: 048
     Dates: start: 20100115
  5. ONDANSETRON [Concomitant]
     Dosage: AS NEEDED
     Route: 048
     Dates: start: 20100223
  6. LACTULOSE [Concomitant]
     Dosage: DOSE: 15 ML 1 TABLESPOON TWICE DAILY
     Route: 048
     Dates: start: 20100224
  7. METOCLOPRAMIDE [Concomitant]
     Dosage: AS NEEDED
     Route: 048
     Dates: start: 20100303
  8. DOXYCYCLINE [Concomitant]
     Route: 048
     Dates: start: 20100310

REACTIONS (8)
  - BILIARY TRACT DISORDER [None]
  - BLOOD BILIRUBIN INCREASED [None]
  - GASTRIC CANCER [None]
  - JAUNDICE [None]
  - JAUNDICE CHOLESTATIC [None]
  - MALIGNANT MESENTERIC NEOPLASM [None]
  - MALIGNANT NEOPLASM PROGRESSION [None]
  - MASS [None]
